FAERS Safety Report 24355336 (Version 1)
Quarter: 2024Q3

REPORT INFORMATION
  Report Type: Spontaneous
  Country: CA (occurrence: None)
  Receive Date: 20240924
  Receipt Date: 20240924
  Transmission Date: 20241017
  Serious: Yes (Other)
  Sender: ACCORD
  Company Number: None

PATIENT
  Age: 35 Year
  Sex: Female

DRUGS (13)
  1. METHOTREXATE SODIUM [Suspect]
     Active Substance: METHOTREXATE SODIUM
     Indication: Cheilitis
     Dosage: SOLUTION
     Route: 013
  2. TACROLIMUS [Suspect]
     Active Substance: TACROLIMUS
     Indication: Prophylaxis
     Route: 061
  3. CRISABOROLE [Suspect]
     Active Substance: CRISABOROLE
     Indication: Dermatitis atopic
     Dosage: 1 EVERY 12 HOURS
     Route: 065
  4. DAPSONE [Suspect]
     Active Substance: DAPSONE
     Indication: Cheilitis
     Dosage: 1 EVERY 12 HOURS
     Route: 065
  5. DOXYCYCLINE [Suspect]
     Active Substance: DOXYCYCLINE\DOXYCYCLINE HYCLATE
     Indication: Cheilitis
     Route: 065
  6. HYDROCORTISONE VALERATE [Suspect]
     Active Substance: HYDROCORTISONE VALERATE
     Indication: Cheilitis
     Route: 065
  7. ISOTRETINOIN [Suspect]
     Active Substance: ISOTRETINOIN
     Indication: Cheilitis
     Dosage: 1 EVERY 24 HOURS
     Route: 065
  8. DUPILUMAB [Suspect]
     Active Substance: DUPILUMAB
     Indication: Cheilitis
     Dosage: 1 EVERY 4 WEEKS
  9. HYDROCORTISONE VALERATE [Concomitant]
     Active Substance: HYDROCORTISONE VALERATE
     Indication: Cheilitis
  10. PARAFFIN [Concomitant]
     Active Substance: PARAFFIN
     Indication: Cheilitis
  11. VALACYCLOVIR HYDROCHLORIDE [Concomitant]
     Active Substance: VALACYCLOVIR HYDROCHLORIDE
     Indication: Prophylaxis
     Dosage: 1 EVERY 12 HOURS
  12. METHOTREXATE SODIUM [Suspect]
     Active Substance: METHOTREXATE SODIUM
     Indication: Cheilitis
     Dosage: SOLUTION INTRA- ARTERIAL
     Route: 013
  13. DUPILUMAB [Suspect]
     Active Substance: DUPILUMAB
     Indication: Cheilitis

REACTIONS (7)
  - Condition aggravated [Recovered/Resolved]
  - Drug ineffective [Recovered/Resolved]
  - Dermatitis [Recovered/Resolved]
  - Cheilitis [Recovered/Resolved]
  - Eyelid irritation [Recovered/Resolved]
  - Therapeutic product ineffective [Recovered/Resolved]
  - Off label use [Recovered/Resolved]
